FAERS Safety Report 12062147 (Version 3)
Quarter: 2016Q2

REPORT INFORMATION
  Report Type: Spontaneous
  Country: CA (occurrence: CA)
  Receive Date: 20160210
  Receipt Date: 20160420
  Transmission Date: 20160815
  Serious: Yes (Other)
  Sender: FDA-Public Use
  Company Number: CA-PFIZER INC-2015236014

PATIENT
  Age: 47 Year
  Sex: Female

DRUGS (4)
  1. METHOTREXATE SODIUM. [Suspect]
     Active Substance: METHOTREXATE SODIUM
     Dosage: 0.6 ML, WEEKLY INJECTION
  2. XELJANZ [Suspect]
     Active Substance: TOFACITINIB CITRATE
     Indication: RHEUMATOID ARTHRITIS
     Dosage: 5 MG, 2X/DAY
     Route: 048
     Dates: start: 20150709
  3. METHOTREXATE SODIUM. [Suspect]
     Active Substance: METHOTREXATE SODIUM
     Indication: RHEUMATOID ARTHRITIS
     Dosage: 0.8 ML, WEEKLY INJECTION
  4. POLIOMYELITIS VACCINE NOS [Suspect]
     Active Substance: POLIOMYELITIS VACCINE
     Dosage: UNK

REACTIONS (20)
  - Abortion spontaneous [Unknown]
  - Nausea [Recovering/Resolving]
  - Arthralgia [Recovering/Resolving]
  - Oropharyngeal pain [Not Recovered/Not Resolved]
  - Productive cough [Not Recovered/Not Resolved]
  - Headache [Not Recovered/Not Resolved]
  - Rheumatoid arthritis [Not Recovered/Not Resolved]
  - Condition aggravated [Not Recovered/Not Resolved]
  - Pain [Not Recovered/Not Resolved]
  - Musculoskeletal stiffness [Not Recovered/Not Resolved]
  - Pyrexia [Recovered/Resolved]
  - Sensitivity to weather change [Unknown]
  - Throat irritation [Not Recovered/Not Resolved]
  - Skin lesion [Not Recovered/Not Resolved]
  - Lividity [Recovered/Resolved]
  - Myalgia [Recovered/Resolved]
  - Weight increased [Not Recovered/Not Resolved]
  - Muscle twitching [Recovering/Resolving]
  - Chest pain [Not Recovered/Not Resolved]
  - Nasopharyngitis [Recovering/Resolving]

NARRATIVE: CASE EVENT DATE: 20150709
